FAERS Safety Report 4767622-X (Version None)
Quarter: 2005Q3

REPORT INFORMATION
  Report Type: 
  Country: None (occurrence: None)
  Receive Date: 20050913
  Receipt Date: 20050811
  Transmission Date: 20060218
  Serious: Yes (Life-Threatening, Other)
  Sender: FDA-Public Use
  Company Number: US-BRISTOL-MYERS SQUIBB COMPANY-13073838

PATIENT
  Age: 54 Year
  Sex: Female
  Weight: 5607 kg

DRUGS (12)
  1. ERBITUX [Suspect]
     Indication: RECTAL CANCER
     Dosage: FIRST DOSE ADMINISTERED (648 MG) ON 03-AUG-2005.  SECOND DOSE ON 10-AUG-2005 51 CC (114 MG).
     Route: 042
     Dates: start: 20050810, end: 20050810
  2. OXALIPLATIN [Concomitant]
     Dosage: ALSO REC'D ON 03-AUG-05.
     Dates: start: 20050810, end: 20050810
  3. LEUCOVORIN [Concomitant]
     Dosage: ALSO REC'D ON 03-AUG-05.
     Dates: start: 20050810, end: 20050810
  4. FLUOROURACIL [Concomitant]
     Dosage: BOLUS THEN CONTINUOUS INFUSION X 46 HOURS. ALSO REC'D ON 03-AUG-05.
     Dates: start: 20050810, end: 20050810
  5. BENADRYL [Concomitant]
     Indication: PREMEDICATION
     Route: 042
     Dates: start: 20050810, end: 20050810
  6. ALOXI [Concomitant]
     Indication: PREMEDICATION
     Route: 042
     Dates: start: 20050810, end: 20050810
  7. ATIVAN [Concomitant]
     Indication: PREMEDICATION
     Route: 042
     Dates: start: 20050810, end: 20050810
  8. DECADRON [Concomitant]
     Indication: PREMEDICATION
     Route: 042
     Dates: start: 20050810, end: 20050810
  9. CALCIUM GLUCONATE [Concomitant]
  10. MAGNESIUM [Concomitant]
  11. COMPAZINE [Concomitant]
     Indication: NAUSEA
  12. ATIVAN [Concomitant]
     Indication: NAUSEA

REACTIONS (3)
  - CHEST DISCOMFORT [None]
  - DYSPNOEA [None]
  - SKIN DISCOLOURATION [None]
